FAERS Safety Report 5162383-7 (Version None)
Quarter: 2006Q4

REPORT INFORMATION
  Report Type: 
  Country: None (occurrence: None)
  Receive Date: 20061201
  Receipt Date: 20061031
  Transmission Date: 20070319
  Serious: Yes (Other)
  Sender: FDA-Public Use
  Company Number: US-SP-2006-02891

PATIENT
  Age: 18 Year
  Sex: Female

DRUGS (3)
  1. TUBERSOL [Suspect]
     Indication: TUBERCULIN TEST
     Route: 023
     Dates: start: 20061030
  2. LOESTRIN [Concomitant]
  3. ALLERGY INJECTIONS [Concomitant]

REACTIONS (2)
  - INJECTION SITE SWELLING [None]
  - OEDEMA PERIPHERAL [None]
